FAERS Safety Report 6964737-2 (Version None)
Quarter: 2010Q3

REPORT INFORMATION
  Report Type: 
  Country: None (occurrence: None)
  Receive Date: 20100831
  Receipt Date: 20100819
  Transmission Date: 20110219
  Serious: Yes (Other)
  Sender: FDA-Public Use
  Company Number: 2010017991

PATIENT
  Age: 40 Year
  Sex: Female

DRUGS (1)
  1. FRAGMIN [Suspect]
     Indication: COAGULATION FACTOR VIII LEVEL INCREASED

REACTIONS (6)
  - CAESAREAN SECTION [None]
  - DRUG EXPOSURE DURING PREGNANCY [None]
  - GESTATIONAL DIABETES [None]
  - HYPOAESTHESIA [None]
  - INJECTION SITE PAIN [None]
  - PREGNANCY [None]
